FAERS Safety Report 4601830-3 (Version None)
Quarter: 2005Q1

REPORT INFORMATION
  Report Type: 
  Country: None (occurrence: None)
  Receive Date: 20050131
  Receipt Date: 20041213
  Transmission Date: 20050727
  Serious: Yes (Other)
  Sender: FDA-Public Use
  Company Number: 200417891US

PATIENT
  Age: 58 Year
  Weight: 69 kg

DRUGS (4)
  1. KETEK [Suspect]
     Indication: SINUSITIS
     Dosage: PO
     Route: 048
  2. GEMFIBROZIL [Concomitant]
  3. VERAPAMIL HYDROCHLORIDE (VERELAN) [Concomitant]
  4. NASACORT AQ [Concomitant]

REACTIONS (2)
  - DYSPNOEA [None]
  - ELECTROCARDIOGRAM QT PROLONGED [None]
